FAERS Safety Report 5059641-3 (Version None)
Quarter: 2006Q2

REPORT INFORMATION
  Report Type: 
  Country: None (occurrence: None)
  Receive Date: 20060629
  Receipt Date: 20060302
  Transmission Date: 20061013
  Serious: No
  Sender: FDA-Public Use
  Company Number: PHEH2005US13759

PATIENT
  Age: 72 Year
  Sex: Male

DRUGS (8)
  1. ENABLEX [Suspect]
     Indication: HYPERTONIC BLADDER
     Dosage: SEE IMAGE
     Dates: start: 20051001
  2. SYNTHROID [Concomitant]
  3. GLYBURIDE [Concomitant]
  4. HYTRIN [Concomitant]
  5. ALTACE [Concomitant]
  6. PRAVACHOL [Concomitant]
  7. VICODIN [Concomitant]
  8. AMBIEN [Concomitant]

REACTIONS (3)
  - DRY MOUTH [None]
  - PRURITUS GENERALISED [None]
  - RASH PRURITIC [None]
